FAERS Safety Report 7420151-7 (Version None)
Quarter: 2011Q2

REPORT INFORMATION
  Report Type: 
  Country: None (occurrence: None)
  Receive Date: 20110413
  Receipt Date: 20110413
  Transmission Date: 20111010
  Serious: Yes (Death)
  Sender: FDA-Public Use
  Company Number: None

PATIENT
  Sex: Female
  Weight: 151 kg

DRUGS (1)
  1. PRADAXA [Suspect]
     Indication: ATRIAL FIBRILLATION
     Dosage: 150 MG BID PO  RECENT SWITCH FROM WARFAR
     Route: 048

REACTIONS (8)
  - SHOCK [None]
  - RENAL FAILURE [None]
  - DIALYSIS [None]
  - HYPERTENSION [None]
  - EPISTAXIS [None]
  - RESPIRATORY FAILURE [None]
  - ABDOMINAL PAIN [None]
  - INTERNATIONAL NORMALISED RATIO INCREASED [None]
